FAERS Safety Report 7938026-3 (Version None)
Quarter: 2011Q4

REPORT INFORMATION
  Report Type: 
  Country: None (occurrence: None)
  Receive Date: 20111123
  Receipt Date: 20111118
  Transmission Date: 20120403
  Serious: Yes (Other)
  Sender: FDA-Public Use
  Company Number: US-US-EMD SERONO, INC.-7097225

PATIENT
  Sex: Female

DRUGS (2)
  1. REBIF [Suspect]
     Indication: MULTIPLE SCLEROSIS
     Route: 058
     Dates: start: 20100208
  2. NAPROXEN (ALEVE) [Concomitant]
     Indication: PREMEDICATION

REACTIONS (5)
  - PAIN [None]
  - CHILLS [None]
  - GLAUCOMA [None]
  - ARTHRALGIA [None]
  - PYREXIA [None]
